FAERS Safety Report 16776773 (Version 1)
Quarter: 2019Q3

REPORT INFORMATION
  Report Type: Spontaneous
  Country: US (occurrence: US)
  Receive Date: 20190905
  Receipt Date: 20190905
  Transmission Date: 20191005
  Serious: Yes (Other)
  Sender: FDA-Public Use
  Company Number: US-TEVA-2019-US-1103018

PATIENT
  Age: 64 Year
  Sex: Female

DRUGS (2)
  1. AMBRISENTAN [Suspect]
     Active Substance: AMBRISENTAN
     Route: 065
  2. TADALAFIL TEVA [Suspect]
     Active Substance: TADALAFIL
     Route: 065

REACTIONS (4)
  - Blood count abnormal [Unknown]
  - Blood pressure decreased [Recovered/Resolved]
  - Fall [Unknown]
  - Confusional state [Recovered/Resolved]
